FAERS Safety Report 18345696 (Version 4)
Quarter: 2021Q3

REPORT INFORMATION
  Report Type: Spontaneous
  Country: JP (occurrence: JP)
  Receive Date: 20201005
  Receipt Date: 20210706
  Transmission Date: 20211014
  Serious: Yes (Death, Hospitalization, Other)
  Sender: FDA-Public Use
  Company Number: JP-EXELIXIS-CABO-20033027

PATIENT
  Age: 50 Year
  Sex: Male
  Weight: 86.6 kg

DRUGS (7)
  1. CABOMETYX [Suspect]
     Active Substance: CABOZANTINIB S-MALATE
     Dosage: 40 MG, QD
     Route: 048
     Dates: start: 202010, end: 202101
  2. CABOMETYX [Suspect]
     Active Substance: CABOZANTINIB S-MALATE
     Indication: NEOPLASM
     Dosage: 40 MG, QD
     Route: 048
     Dates: start: 20200825, end: 20200831
  3. CABOMETYX [Suspect]
     Active Substance: CABOZANTINIB S-MALATE
     Indication: TUMOUR EMBOLISM
     Dosage: 20 MG, QD
     Route: 048
     Dates: start: 20200908
  4. THYRADIN S [Concomitant]
     Active Substance: LEVOTHYROXINE SODIUM
     Indication: HYPOTHYROIDISM
     Dosage: 75 UG, QD
     Route: 048
     Dates: start: 20200703, end: 20200929
  5. CABOMETYX [Suspect]
     Active Substance: CABOZANTINIB S-MALATE
     Indication: RENAL CELL CARCINOMA
     Dosage: 60 MG, QD
     Route: 048
     Dates: start: 20200804, end: 20200824
  6. CABOMETYX [Suspect]
     Active Substance: CABOZANTINIB S-MALATE
     Dosage: 60 MG, QD
     Route: 048
     Dates: start: 202009, end: 202010
  7. CABOMETYX [Suspect]
     Active Substance: CABOZANTINIB S-MALATE
     Dosage: 20 MG, QD
     Route: 048
     Dates: start: 202101, end: 202101

REACTIONS (19)
  - Neuropathy peripheral [Recovered/Resolved]
  - Cholangitis [Unknown]
  - Metastases to liver [Unknown]
  - Metastases to lymph nodes [Unknown]
  - Headache [Unknown]
  - Taste disorder [Unknown]
  - Decreased appetite [Unknown]
  - Condition aggravated [Unknown]
  - Abdominal discomfort [Recovered/Resolved]
  - Hepatic function abnormal [Recovering/Resolving]
  - Death [Fatal]
  - Cholecystitis acute [Recovered/Resolved]
  - Palmar-plantar erythrodysaesthesia syndrome [Unknown]
  - Nausea [Unknown]
  - Device occlusion [Unknown]
  - Hypertension [Recovered/Resolved]
  - Ascites [Unknown]
  - Pneumonia [Unknown]
  - Hypothyroidism [Unknown]

NARRATIVE: CASE EVENT DATE: 20200812
